FAERS Safety Report 8800712 (Version 2)
Quarter: 2015Q1

REPORT INFORMATION
  Report Type: Report from Study
  Country: US (occurrence: US)
  Receive Date: 20120921
  Receipt Date: 20150311
  Transmission Date: 20150721
  Serious: Yes (Death)
  Sender: FDA-Public Use
  Company Number: US-ROCHE-1123689

PATIENT
  Sex: Male
  Weight: 71.4 kg

DRUGS (9)
  1. FOLINIC ACID [Concomitant]
     Active Substance: LEUCOVORIN
  2. AVASTIN [Suspect]
     Active Substance: BEVACIZUMAB
     Indication: COLON CANCER
     Route: 042
     Dates: start: 20050419
  3. LEUCOVORIN [Concomitant]
     Active Substance: LEUCOVORIN
     Route: 042
  4. FLUOROURACIL. [Concomitant]
     Active Substance: FLUOROURACIL
  5. ZOFRAN [Concomitant]
     Active Substance: ONDANSETRON HYDROCHLORIDE
     Route: 042
  6. DECADRON [Concomitant]
     Active Substance: DEXAMETHASONE
     Route: 042
  7. OXALIPLATIN. [Concomitant]
     Active Substance: OXALIPLATIN
     Route: 042
  8. CALCIUM GLUCONATE. [Concomitant]
     Active Substance: CALCIUM GLUCONATE
     Route: 065
  9. MAGNESIUM SULPHATE [Concomitant]
     Active Substance: MAGNESIUM SULFATE
     Route: 065

REACTIONS (3)
  - Death [Fatal]
  - Neuropathy peripheral [Unknown]
  - Pyrexia [Unknown]
